FAERS Safety Report 5501145-5 (Version None)
Quarter: 2007Q4

REPORT INFORMATION
  Report Type: 
  Country: None (occurrence: None)
  Receive Date: 20071029
  Receipt Date: 20071024
  Transmission Date: 20080405
  Serious: Yes (Death)
  Sender: FDA-Public Use
  Company Number: US-ROXANE LABORATORIES, INC-2005-DE-03501GD

PATIENT
  Sex: Female

DRUGS (3)
  1. INTERFERON GAMMA [Suspect]
     Indication: COCCIDIOIDOMYCOSIS
  2. FLUCONAZOLE [Suspect]
     Indication: COCCIDIOIDOMYCOSIS
     Route: 048
  3. VORICONAZOLE [Suspect]
     Indication: COCCIDIOIDOMYCOSIS

REACTIONS (3)
  - ABDOMINAL ABSCESS [None]
  - DISEASE PROGRESSION [None]
  - PERITONITIS [None]
